FAERS Safety Report 5709866-6 (Version None)
Quarter: 2008Q2

REPORT INFORMATION
  Report Type: 
  Country: None (occurrence: None)
  Receive Date: 20080418
  Receipt Date: 20070226
  Transmission Date: 20081010
  Serious: No
  Sender: FDA-Public Use
  Company Number: US-ASTRAZENECA-2007UW03625

PATIENT
  Age: 51 Year
  Sex: Male
  Weight: 104.8 kg

DRUGS (5)
  1. TOPROL-XL [Suspect]
     Indication: HYPERTENSION
     Route: 048
  2. BUSPAR [Concomitant]
  3. PROTONIX [Concomitant]
  4. FLUTICASE [Concomitant]
  5. NASAL SPRAY [Concomitant]

REACTIONS (2)
  - HEADACHE [None]
  - ORTHOSTATIC HYPERTENSION [None]
